FAERS Safety Report 6162329-9 (Version None)
Quarter: 2009Q2

REPORT INFORMATION
  Report Type: 
  Country: None (occurrence: None)
  Receive Date: 20090417
  Receipt Date: 20090402
  Transmission Date: 20091009
  Serious: Yes (Other)
  Sender: FDA-Public Use
  Company Number: 200904IM00013

PATIENT
  Age: 51 Year
  Sex: Male

DRUGS (1)
  1. INTERFERON GAMMA-1B [Suspect]
     Indication: SCLERODERMA

REACTIONS (2)
  - LUNG TRANSPLANT [None]
  - RENAL FAILURE [None]
